FAERS Safety Report 9161993 (Version 2)
Quarter: 2013Q1

REPORT INFORMATION
  Report Type: Spontaneous
  Country: US (occurrence: None)
  Receive Date: 20130225
  Receipt Date: 20130327
  Transmission Date: 20140127
  Serious: Yes (Other)
  Sender: FDA-Public Use
  Company Number: US-JNJFOC-20130206596

PATIENT
  Sex: 0

DRUGS (1)
  1. DECITABINE [Suspect]
     Indication: ACUTE MYELOID LEUKAEMIA RECURRENT

REACTIONS (3)
  - Acute graft versus host disease [None]
  - Acute myeloid leukaemia [None]
  - Acute graft versus host disease in liver [None]
